FAERS Safety Report 19194891 (Version 1)
Quarter: 2021Q2

REPORT INFORMATION
  Report Type: Spontaneous
  Country: ES (occurrence: ES)
  Receive Date: 20210429
  Receipt Date: 20210429
  Transmission Date: 20210717
  Serious: Yes (Other)
  Sender: FDA-Public Use
  Company Number: ES-TEVA-2021-ES-1905375

PATIENT
  Age: 71 Year
  Sex: Female

DRUGS (3)
  1. PREDNISONA (886A) [Suspect]
     Active Substance: PREDNISONE
     Indication: RENAL TRANSPLANT
     Dosage: 60MG
     Route: 048
     Dates: start: 201204, end: 20190914
  2. TACROLIMUS (2694A) [Interacting]
     Active Substance: TACROLIMUS
     Indication: RENAL TRANSPLANT
     Route: 048
     Dates: start: 201204, end: 20190920
  3. MICOFENOLATO DE MOFETILO (7330LM) [Interacting]
     Active Substance: MYCOPHENOLATE MOFETIL
     Indication: RENAL TRANSPLANT
     Dosage: 500MG
     Route: 048
     Dates: start: 201204, end: 20190915

REACTIONS (2)
  - Drug interaction [Unknown]
  - Oral herpes [Recovered/Resolved]

NARRATIVE: CASE EVENT DATE: 20190910
